FAERS Safety Report 7459947-4 (Version None)
Quarter: 2011Q2

REPORT INFORMATION
  Report Type: 
  Country: None (occurrence: None)
  Receive Date: 20110427
  Receipt Date: 20110414
  Transmission Date: 20111010
  Serious: Yes (Other)
  Sender: FDA-Public Use
  Company Number: UKP11000039

PATIENT
  Age: 67 Year
  Sex: Female

DRUGS (5)
  1. ACTONEL [Suspect]
     Indication: OSTEOPOROSIS PROPHYLAXIS
     Dosage: 35 MG, 1/WEEK, ORAL
     Route: 048
     Dates: start: 20101001
  2. PROGRAF [Suspect]
     Indication: RENAL TRANSPLANT
     Dosage: 3, 1 MG, 3/DAY, ORAL
     Route: 048
     Dates: end: 20101001
  3. PROGRAF [Suspect]
     Indication: RENAL TRANSPLANT
     Dosage: 3, 1 MG, 3/DAY, ORAL
     Route: 048
     Dates: start: 20101001
  4. PREDNISOLONE [Concomitant]
  5. RISEDRONATE SODIUM [Suspect]
     Indication: OSTEOPOROSIS PROPHYLAXIS
     Dosage: 35 MG, 1/WEEK, ORAL
     Route: 048

REACTIONS (1)
  - DRUG LEVEL DECREASED [None]
